FAERS Safety Report 13994200 (Version 1)
Quarter: 2017Q3

REPORT INFORMATION
  Report Type: Spontaneous
  Country: US (occurrence: US)
  Receive Date: 20170920
  Receipt Date: 20170920
  Transmission Date: 20171128
  Serious: No
  Sender: FDA-Public Use
  Company Number: US-NEUROCRINE BIOSCIENCES INC.-2017NBI00477

PATIENT
  Age: 49 Year
  Sex: Female

DRUGS (12)
  1. BENZTROPINE [Concomitant]
     Active Substance: BENZTROPINE
  2. MULTIVITAMIN [Concomitant]
     Active Substance: VITAMINS
  3. OLANZAPINE. [Concomitant]
     Active Substance: OLANZAPINE
  4. REFRESH [Concomitant]
     Active Substance: UNSPECIFIED INGREDIENT
  5. GIANVI [Concomitant]
     Active Substance: DROSPIRENONE\ETHINYL ESTRADIOL
  6. MECLIZINE [Concomitant]
     Active Substance: MECLIZINE HYDROCHLORIDE
  7. IBUPROFEN. [Concomitant]
     Active Substance: IBUPROFEN
  8. VITAMIN C [Concomitant]
     Active Substance: ASCORBIC ACID
  9. LEXAPRO [Concomitant]
     Active Substance: ESCITALOPRAM OXALATE
  10. INGREZZA [Suspect]
     Active Substance: VALBENAZINE
     Indication: TARDIVE DYSKINESIA
     Route: 048
     Dates: start: 20170620, end: 20170712
  11. BUSPIRINE [Concomitant]
  12. MIRALAX [Concomitant]
     Active Substance: POLYETHYLENE GLYCOL 3350

REACTIONS (2)
  - Tic [Unknown]
  - Head titubation [Recovered/Resolved]

NARRATIVE: CASE EVENT DATE: 2017
